FAERS Safety Report 4314904-1 (Version None)
Quarter: 2004Q1

REPORT INFORMATION
  Report Type: 
  Country: None (occurrence: None)
  Receive Date: 20040310
  Receipt Date: 20040310
  Transmission Date: 20041129
  Serious: Yes (Other)
  Sender: FDA-Public Use
  Company Number: None

PATIENT
  Age: 67 Year
  Sex: Female
  Weight: 65.7716 kg

DRUGS (8)
  1. LOVASTATIN 20 MG (BLUE) [Suspect]
     Indication: HYPERLIPIDAEMIA
     Dosage: 20 MG
     Dates: start: 20030801, end: 20040108
  2. ROSIGLITAZONE MALEATE [Concomitant]
  3. COUMADIN [Concomitant]
  4. GLIPIXIDE [Concomitant]
  5. LANOXIN [Concomitant]
  6. CARVEDILOL [Concomitant]
  7. FUROSEMIDE [Concomitant]
  8. BENAZOPRIL [Concomitant]

REACTIONS (3)
  - COUGH [None]
  - MEDICATION ERROR [None]
  - PHARMACEUTICAL PRODUCT COMPLAINT [None]
